FAERS Safety Report 14151557 (Version 1)
Quarter: 2017Q4

REPORT INFORMATION
  Report Type: Spontaneous
  Country: US (occurrence: None)
  Receive Date: 20171101
  Receipt Date: 20171101
  Transmission Date: 20180321
  Serious: Yes (Hospitalization)
  Sender: FDA-Public Use
  Company Number: None

PATIENT
  Age: 34 Year
  Sex: Female
  Weight: 59 kg

DRUGS (2)
  1. CYCLOPHOSPHAMIDE. [Suspect]
     Active Substance: CYCLOPHOSPHAMIDE
     Dates: end: 20171019
  2. DOXORUBICIN HYDROCHLORIDE. [Suspect]
     Active Substance: DOXORUBICIN HYDROCHLORIDE
     Dates: end: 20171019

REACTIONS (8)
  - Infusion site pain [None]
  - Infusion site infection [None]
  - White blood cell count decreased [None]
  - Pyrexia [None]
  - Pseudomonas test positive [None]
  - Infusion site erythema [None]
  - Neutrophil count decreased [None]
  - Malaise [None]

NARRATIVE: CASE EVENT DATE: 20171025
